FAERS Safety Report 5463642-0 (Version None)
Quarter: 2007Q3

REPORT INFORMATION
  Report Type: 
  Country: None (occurrence: None)
  Receive Date: 20070920
  Receipt Date: 20070910
  Transmission Date: 20080115
  Serious: Yes (Life-Threatening, Hospitalization)
  Sender: FDA-Public Use
  Company Number: US-MERCK-0708USA03779

PATIENT
  Age: 86 Year
  Sex: Female
  Weight: 46 kg

DRUGS (5)
  1. FOSAMAX PLUS D [Suspect]
     Indication: OSTEOPOROSIS
     Route: 048
     Dates: start: 20070505, end: 20070808
  2. FOSAMAX PLUS D [Suspect]
     Indication: KYPHOSIS
     Route: 048
     Dates: start: 20070505, end: 20070808
  3. ANTIMICROBIAL (UNSPECIFIED) [Concomitant]
     Route: 065
  4. CENTRUM SILVER [Concomitant]
     Route: 065
  5. NYSTATIN AND TRIAMCINOLONE ACETONIDE [Concomitant]
     Route: 065

REACTIONS (9)
  - ACIDOSIS [None]
  - CAROTID ARTERY STENOSIS [None]
  - HYPERKALAEMIA [None]
  - HYPERPARATHYROIDISM SECONDARY [None]
  - MITRAL VALVE INCOMPETENCE [None]
  - PULMONARY HYPERTENSION [None]
  - RENAL CYST [None]
  - RENAL FAILURE ACUTE [None]
  - TRICUSPID VALVE INCOMPETENCE [None]
